FAERS Safety Report 5239612-4 (Version None)
Quarter: 2007Q1

REPORT INFORMATION
  Report Type: 
  Country: None (occurrence: None)
  Receive Date: 20070216
  Receipt Date: 20070209
  Transmission Date: 20070707
  Serious: Yes (Disabling)
  Sender: FDA-Public Use
  Company Number: NZ-GLAXOSMITHKLINE-B0323439A

PATIENT
  Age: 50 Year
  Sex: Female

DRUGS (2)
  1. FLIXOTIDE [Suspect]
     Indication: ASTHMA
     Dosage: 250MG TWICE PER DAY
     Route: 055
     Dates: start: 20030812, end: 20040210
  2. VENTOLIN [Concomitant]
     Dosage: 200MCG TWICE PER DAY
     Route: 055

REACTIONS (39)
  - ABDOMINAL PAIN UPPER [None]
  - ALLERGIC GRANULOMATOUS ANGIITIS [None]
  - ANGINA PECTORIS [None]
  - ANTINUCLEAR ANTIBODY POSITIVE [None]
  - ARRHYTHMIA [None]
  - ASTHENIA [None]
  - BUNDLE BRANCH BLOCK LEFT [None]
  - BUNDLE BRANCH BLOCK RIGHT [None]
  - CARDIAC DISORDER [None]
  - CATARACT [None]
  - CONVULSION [None]
  - COUGH [None]
  - DEPRESSION [None]
  - DRY EYE [None]
  - DYSPNOEA [None]
  - ELECTROCARDIOGRAM QRS COMPLEX ABNORMAL [None]
  - EMBOLISM [None]
  - EYE DISORDER [None]
  - EYE PAIN [None]
  - FASCIITIS [None]
  - HEART SOUNDS ABNORMAL [None]
  - HYPOAESTHESIA [None]
  - LUNG DISORDER [None]
  - MIXED CONNECTIVE TISSUE DISEASE [None]
  - OPTIC NERVE INJURY [None]
  - PAIN IN EXTREMITY [None]
  - PALPITATIONS [None]
  - PARAESTHESIA [None]
  - PSYCHIATRIC SYMPTOM [None]
  - RASH ERYTHEMATOUS [None]
  - RETINAL INFARCTION [None]
  - SINUS RHYTHM [None]
  - SKIN DISORDER [None]
  - SKIN LESION [None]
  - SUICIDAL IDEATION [None]
  - SYNCOPE VASOVAGAL [None]
  - SYSTEMIC LUPUS ERYTHEMATOSUS [None]
  - VASCULITIS [None]
  - VITREOUS DETACHMENT [None]
